FAERS Safety Report 15944900 (Version 1)
Quarter: 2019Q1

REPORT INFORMATION
  Report Type: Spontaneous
  Country: US (occurrence: US)
  Receive Date: 20190211
  Receipt Date: 20190211
  Transmission Date: 20190417
  Serious: No
  Sender: FDA-Public Use
  Company Number: US-PERRIGO-18US005862

PATIENT
  Age: 9 Year
  Sex: Female
  Weight: 35.83 kg

DRUGS (1)
  1. IBUPROFEN. [Suspect]
     Active Substance: IBUPROFEN
     Indication: PAIN
     Dosage: 300 MG, TWICE IN 5 HOURS
     Route: 048
     Dates: start: 20180530, end: 20180530

REACTIONS (2)
  - Inappropriate schedule of product administration [Recovered/Resolved]
  - Wrong device used [Recovered/Resolved]

NARRATIVE: CASE EVENT DATE: 20180530
